FAERS Safety Report 16577313 (Version 1)
Quarter: 2019Q3

REPORT INFORMATION
  Report Type: Spontaneous
  Country: FR (occurrence: FR)
  Receive Date: 20190716
  Receipt Date: 20190716
  Transmission Date: 20191004
  Serious: Yes (Other)
  Sender: FDA-Public Use
  Company Number: FR-TEVA-2019-FR-1077299

PATIENT
  Age: 87 Year
  Sex: Female
  Weight: 132 kg

DRUGS (10)
  1. FUROSEMIDE. [Suspect]
     Active Substance: FUROSEMIDE
     Indication: HYPERTENSION
     Dosage: 40 MILLIGRAM DAILY;
     Route: 048
     Dates: end: 20190418
  2. CANDESARTAN CILEXETIL. [Suspect]
     Active Substance: CANDESARTAN CILEXETIL
     Indication: HYPERTENSION
     Dosage: 16MG
     Route: 048
     Dates: end: 20190418
  3. ASCOFER [Concomitant]
     Active Substance: FERROUS GLUCONATE
  4. AMLODIPINE [Concomitant]
     Active Substance: AMLODIPINE BESYLATE
  5. PYOSTACINE [Concomitant]
     Active Substance: PRISTINAMYCIN
  6. NEFOPAM MEDISOL 20 MG/2 ML, SOLUTION INJECTABLE [Concomitant]
  7. PANTOPRAZOLE MYLAN 40 MG, COMPRIM? GASTRO-R?SISTANT [Concomitant]
     Active Substance: PANTOPRAZOLE SODIUM
  8. SPASFON (PHLOROGLUCINOL;TRIMETHYLPHLOROGLUCINOL) [Concomitant]
     Active Substance: PHLOROGLUCINOL\1,3,5-TRIMETHOXYBENZENE
  9. DOLIPRANE [Concomitant]
     Active Substance: ACETAMINOPHEN
  10. DUROGESIC [Concomitant]
     Active Substance: FENTANYL

REACTIONS (1)
  - Acute kidney injury [Recovered/Resolved]

NARRATIVE: CASE EVENT DATE: 20190418
